FAERS Safety Report 20932122 (Version 1)
Quarter: 2022Q2

REPORT INFORMATION
  Report Type: Report from Study
  Country: ZA (occurrence: ZA)
  Receive Date: 20220608
  Receipt Date: 20220608
  Transmission Date: 20220721
  Serious: Yes (Hospitalization)
  Sender: FDA-Public Use
  Company Number: ZA-NOVARTISPH-NVSC2022ZA128717

PATIENT
  Sex: Male

DRUGS (2)
  1. LOSARTAN [Suspect]
     Active Substance: LOSARTAN
     Indication: Hypertension
     Dosage: 100 MG, QD
     Route: 048
  2. BISOPROLOL FUMARATE [Concomitant]
     Active Substance: BISOPROLOL FUMARATE
     Indication: Bradycardia
     Dosage: 5 MG, QD
     Route: 065

REACTIONS (7)
  - Cardiac failure chronic [Unknown]
  - Dyspnoea [Unknown]
  - Orthopnoea [Unknown]
  - Fatigue [Unknown]
  - Oedema peripheral [Unknown]
  - Pulmonary oedema [Unknown]
  - Localised oedema [Unknown]
